FAERS Safety Report 13986953 (Version 1)
Quarter: 2017Q3

REPORT INFORMATION
  Report Type: Spontaneous
  Country: FR (occurrence: FR)
  Receive Date: 20170919
  Receipt Date: 20170919
  Transmission Date: 20171128
  Serious: Yes (Other)
  Sender: FDA-Public Use
  Company Number: FR-BAYER-2017-177178

PATIENT
  Age: 38 Year
  Sex: Female

DRUGS (1)
  1. MIRENA [Suspect]
     Active Substance: LEVONORGESTREL
     Indication: CONTRACEPTION
     Dosage: 20 MCG/24HR, CONT
     Route: 015
     Dates: start: 20130820, end: 20170822

REACTIONS (14)
  - Anxiety [Unknown]
  - Vision blurred [Unknown]
  - Irritability [Unknown]
  - Migraine [Unknown]
  - Weight increased [Unknown]
  - Loss of libido [Unknown]
  - Seborrhoea [Unknown]
  - Acne [Unknown]
  - Muscle spasms [Unknown]
  - Vaginal discharge [Unknown]
  - Diffuse alopecia [Unknown]
  - Vaginal odour [Unknown]
  - Mood swings [Unknown]
  - Formication [Unknown]
